FAERS Safety Report 13969053 (Version 1)
Quarter: 2017Q3

REPORT INFORMATION
  Report Type: Spontaneous
  Country: SE (occurrence: SE)
  Receive Date: 20170914
  Receipt Date: 20170914
  Transmission Date: 20171128
  Serious: Yes (Other)
  Sender: FDA-Public Use
  Company Number: SE-PFIZER INC-2017341688

PATIENT
  Age: 54 Year
  Sex: Female

DRUGS (1)
  1. VENLAFAXINE HCL [Suspect]
     Active Substance: VENLAFAXINE HYDROCHLORIDE
     Indication: DEPRESSION
     Dosage: UNK (FOR 1-2 MONTHS)
     Dates: start: 1998

REACTIONS (4)
  - Type 2 diabetes mellitus [Unknown]
  - Glycosuria [Unknown]
  - Urine output increased [Unknown]
  - Ecchymosis [Unknown]

NARRATIVE: CASE EVENT DATE: 1998
